FAERS Safety Report 8097683-4 (Version None)
Quarter: 2012Q1

REPORT INFORMATION
  Report Type: 
  Country: None (occurrence: None)
  Receive Date: 20120128
  Receipt Date: 20110713
  Transmission Date: 20120608
  Serious: No
  Sender: FDA-Public Use
  Company Number: US-ABBOTT-11P-163-0838904-00

PATIENT
  Age: 25 Year
  Sex: Male

DRUGS (4)
  1. SULFAZINE [Concomitant]
     Indication: CROHN'S DISEASE
  2. HUMIRA [Suspect]
     Indication: CROHN'S DISEASE
     Dosage: INITIAL LOADING DOSE
     Dates: start: 20110629, end: 20110629
  3. MERCAPTOPURINE [Concomitant]
     Indication: CROHN'S DISEASE
     Dosage: DAILY
  4. HUMIRA [Suspect]
     Dosage: NOT REPORTED

REACTIONS (2)
  - RASH PRURITIC [None]
  - RASH MACULAR [None]
